FAERS Safety Report 23748609 (Version 3)
Quarter: 2024Q4

REPORT INFORMATION
  Report Type: Spontaneous
  Country: PT (occurrence: PT)
  Receive Date: 20240416
  Receipt Date: 20241216
  Transmission Date: 20250115
  Serious: Yes (Death, Hospitalization, Other)
  Sender: MYLAN
  Company Number: PT-PHARMALEX-2024000287

PATIENT
  Age: 51 Year
  Sex: Male

DRUGS (11)
  1. MYCOPHENOLATE MOFETIL [Suspect]
     Active Substance: MYCOPHENOLATE MOFETIL
     Indication: Immunosuppressant drug therapy
     Dosage: UNK
     Route: 065
  2. TACROLIMUS [Suspect]
     Active Substance: TACROLIMUS
     Indication: Immunosuppressant drug therapy
     Dosage: UNK
     Route: 065
  3. EVEROLIMUS [Suspect]
     Active Substance: EVEROLIMUS
     Indication: Immunosuppressant drug therapy
     Dosage: UNK
     Route: 065
  4. CIPROFLOXACIN [Suspect]
     Active Substance: CIPROFLOXACIN
     Indication: Antibiotic prophylaxis
     Dosage: 1 DOSAGE FORM, QD
     Route: 065
  5. GANCICLOVIR [Suspect]
     Active Substance: GANCICLOVIR
     Indication: Cytomegalovirus colitis
     Dosage: UNK
     Route: 065
  6. GANCICLOVIR [Suspect]
     Active Substance: GANCICLOVIR
     Indication: Epstein-Barr virus infection
  7. GANCICLOVIR [Suspect]
     Active Substance: GANCICLOVIR
     Indication: Enterocolitis viral
  8. GANCICLOVIR [Suspect]
     Active Substance: GANCICLOVIR
     Indication: Evidence based treatment
  9. METRONIDAZOLE [Suspect]
     Active Substance: METRONIDAZOLE
     Indication: Antibiotic prophylaxis
     Dosage: UNK
     Route: 065
  10. PREDNISOLONE [Suspect]
     Active Substance: PREDNISOLONE
     Indication: Immunosuppressant drug therapy
     Route: 065
  11. CYCLOSPORINE [Concomitant]
     Active Substance: CYCLOSPORINE
     Indication: Immunosuppressant drug therapy
     Dosage: UNK
     Route: 065

REACTIONS (10)
  - Febrile neutropenia [Fatal]
  - Peritonitis [Fatal]
  - Postoperative wound infection [Fatal]
  - Abdominal abscess [Fatal]
  - Pneumonia [Fatal]
  - Shock haemorrhagic [Unknown]
  - Cytomegalovirus colitis [Recovered/Resolved]
  - Epstein-Barr virus infection [Unknown]
  - Drug ineffective [Unknown]
  - Gastrointestinal disorder [Unknown]
